FAERS Safety Report 7562804-6 (Version None)
Quarter: 2011Q3

REPORT INFORMATION
  Report Type: 
  Country: None (occurrence: None)
  Receive Date: 20110621
  Receipt Date: 20110621
  Transmission Date: 20111222
  Serious: Yes (Death)
  Sender: FDA-Public Use
  Company Number: None

PATIENT
  Age: 4 Year
  Sex: Female
  Weight: 17.7 kg

DRUGS (4)
  1. LOPINAVIR/RITONAVIR [Suspect]
     Indication: HIV INFECTION
     Dosage: 200 MG BID ORAL
     Route: 048
     Dates: start: 20090427, end: 20110529
  2. COTRIM [Concomitant]
  3. LAMIVUDINE(PEPFAR) [Suspect]
     Indication: HIV INFECTION
     Dosage: 70 MG BID ORAL
     Route: 048
     Dates: start: 20090427, end: 20110529
  4. ZIDOVUDINE [Suspect]
     Indication: HIV INFECTION
     Dosage: 120 MG BID ORAL
     Route: 048
     Dates: start: 20090427, end: 20110529

REACTIONS (3)
  - ANAEMIA [None]
  - HEADACHE [None]
  - ASTHENIA [None]
